FAERS Safety Report 4694544-5 (Version None)
Quarter: 2005Q2

REPORT INFORMATION
  Report Type: 
  Country: None (occurrence: None)
  Receive Date: 20050620
  Receipt Date: 20050310
  Transmission Date: 20051028
  Serious: Yes (Death, Hospitalization, Other)
  Sender: FDA-Public Use
  Company Number: US-MERCK-0503USA02040

PATIENT
  Age: 80 Year
  Sex: Female
  Weight: 68 kg

DRUGS (3)
  1. LEVOTHROID [Concomitant]
     Indication: HYPOTHYROIDISM
     Route: 065
  2. VIOXX [Suspect]
     Route: 048
     Dates: start: 20010301, end: 20030219
  3. FOSAMAX [Concomitant]
     Route: 065

REACTIONS (17)
  - ASTROCYTOMA [None]
  - CARDIO-RESPIRATORY ARREST [None]
  - CEREBROVASCULAR ACCIDENT [None]
  - CEREBROVASCULAR DISORDER [None]
  - CORONARY ARTERY DISEASE [None]
  - DECREASED APPETITE [None]
  - DEHYDRATION [None]
  - DYSPNOEA [None]
  - HYPERCALCAEMIA [None]
  - HYPERLIPIDAEMIA [None]
  - HYPERTENSION [None]
  - LACUNAR INFARCTION [None]
  - LETHARGY [None]
  - METASTASIS [None]
  - MYOCARDIAL INFARCTION [None]
  - NON-HODGKIN'S LYMPHOMA [None]
  - TRANSIENT ISCHAEMIC ATTACK [None]
